FAERS Safety Report 9435655 (Version 1)
Quarter: 2013Q3

REPORT INFORMATION
  Report Type: Spontaneous
  Country: US (occurrence: US)
  Receive Date: 20130730
  Receipt Date: 20130730
  Transmission Date: 20140515
  Serious: Yes (Death)
  Sender: FDA-Public Use
  Company Number: ADR-2013UNK130

PATIENT
  Age: 49 Day
  Sex: 0

DRUGS (5)
  1. EFAVIRENZ TABS [Suspect]
     Indication: ACQUIRED IMMUNODEFICIENCY SYNDROME
     Route: 048
     Dates: start: 20120427, end: 20130108
  2. TRUVADA [Concomitant]
  3. KALETRA [Concomitant]
  4. ALUVIA [Concomitant]
  5. LPV/R [Concomitant]

REACTIONS (1)
  - Foetal exposure during pregnancy [None]
